FAERS Safety Report 12564157 (Version 1)
Quarter: 2016Q3

REPORT INFORMATION
  Report Type: Spontaneous
  Country: US (occurrence: US)
  Receive Date: 20160718
  Receipt Date: 20160718
  Transmission Date: 20161109
  Serious: No
  Sender: FDA-Public Use
  Company Number: US-ALARA PHARMACEUTICAL CORPORATION-1055166

PATIENT
  Sex: Female

DRUGS (2)
  1. LEVO-T [Suspect]
     Active Substance: LEVOTHYROXINE SODIUM
     Indication: POSTOPERATIVE CARE
  2. LEVO-T [Suspect]
     Active Substance: LEVOTHYROXINE SODIUM
     Indication: THYROIDECTOMY

REACTIONS (4)
  - Rash pruritic [Recovered/Resolved]
  - Dermatitis acneiform [None]
  - Product substitution issue [None]
  - Reaction to drug excipients [None]
